FAERS Safety Report 8041239-6 (Version None)
Quarter: 2012Q1

REPORT INFORMATION
  Report Type: 
  Country: None (occurrence: None)
  Receive Date: 20120109
  Receipt Date: 20120105
  Transmission Date: 20120608
  Serious: No
  Sender: FDA-Public Use
  Company Number: ACO_28450_2011

PATIENT
  Age: 23 Year
  Sex: Male

DRUGS (2)
  1. AMPYRA [Suspect]
     Indication: MULTIPLE SCLEROSIS
     Dates: start: 20110101
  2. TYSABRI [Concomitant]

REACTIONS (3)
  - CONVULSION [None]
  - PARAESTHESIA [None]
  - HYPOAESTHESIA [None]
